FAERS Safety Report 8846943 (Version 1)
Quarter: 2012Q4

REPORT INFORMATION
  Report Type: Spontaneous
  Country: US (occurrence: None)
  Receive Date: 20121016
  Receipt Date: 20121016
  Transmission Date: 20130627
  Serious: Yes (Other)
  Sender: FDA-Public Use
  Company Number: 001369716A

PATIENT
  Age: 36 Year
  Sex: Female

DRUGS (4)
  1. PROACTIV CLEANSER [Suspect]
     Dates: start: 20120823, end: 20120831
  2. PROACTIV REPAIRING TREATMENT [Suspect]
     Dates: start: 20120823, end: 20120831
  3. UNSPECIFIED INGREDIENT [Suspect]
     Dates: start: 20120823, end: 20120831
  4. OIL FREE MOISTURIZER SPF [Suspect]
     Dates: start: 20120823, end: 20120831

REACTIONS (6)
  - Face oedema [None]
  - Lip oedema [None]
  - Tongue oedema [None]
  - Dysphagia [None]
  - Dry skin [None]
  - Hypersensitivity [None]
